FAERS Safety Report 21547535 (Version 1)
Quarter: 2022Q4

REPORT INFORMATION
  Report Type: Spontaneous
  Country: US (occurrence: US)
  Receive Date: 20221103
  Receipt Date: 20221103
  Transmission Date: 20230113
  Serious: Yes (Hospitalization)
  Sender: FDA-Public Use
  Company Number: US-drreddys-LIT/USA/22/0156567

PATIENT
  Age: 61 Year
  Sex: Male

DRUGS (5)
  1. MELPHALAN HYDROCHLORIDE [Suspect]
     Active Substance: MELPHALAN HYDROCHLORIDE
     Indication: Bone marrow conditioning regimen
  2. MELPHALAN HYDROCHLORIDE [Suspect]
     Active Substance: MELPHALAN HYDROCHLORIDE
     Indication: Plasma cell myeloma
  3. DEXAMETHASONE SODIUM PHOSPHATE [Suspect]
     Active Substance: DEXAMETHASONE SODIUM PHOSPHATE
     Indication: COVID-19 pneumonia
     Dosage: A FOUR DAY COURSE STARTING ON DAY 11
  4. BUSULFAN [Suspect]
     Active Substance: BUSULFAN
     Indication: Bone marrow conditioning regimen
  5. BUSULFAN [Suspect]
     Active Substance: BUSULFAN
     Indication: Plasma cell myeloma

REACTIONS (3)
  - Febrile neutropenia [Recovering/Resolving]
  - COVID-19 pneumonia [Recovering/Resolving]
  - Off label use [Unknown]
